FAERS Safety Report 8834312 (Version 1)
Quarter: 2012Q4

REPORT INFORMATION
  Report Type: 
  Country: NO (occurrence: NO)
  Receive Date: 20121010
  Receipt Date: 20121010
  Transmission Date: 20130627
  Serious: Yes (Hospitalization, Other)
  Sender: FDA-Public Use
  Company Number: NO-WATSON-2012-17127

PATIENT
  Age: 64 Year
  Sex: Female

DRUGS (1)
  1. AZULFIDINE [Suspect]
     Indication: RHEUMATOID ARTHRITIS
     Dosage: 2 g, daily
     Route: 065

REACTIONS (6)
  - Synovitis [Unknown]
  - Fasciitis [Unknown]
  - Osteomyelitis [Unknown]
  - Pneumonia [Unknown]
  - Urinary tract infection [Unknown]
  - Urosepsis [None]
